FAERS Safety Report 20175816 (Version 1)
Quarter: 2021Q4

REPORT INFORMATION
  Report Type: Spontaneous
  Country: US (occurrence: None)
  Receive Date: 20211212
  Receipt Date: 20211212
  Transmission Date: 20220303
  Serious: Yes (Hospitalization)
  Sender: FDA-Public Use
  Company Number: None

PATIENT
  Age: 61 Year
  Sex: Male

DRUGS (1)
  1. WARFARIN SODIUM [Suspect]
     Active Substance: WARFARIN SODIUM
     Indication: Deep vein thrombosis
     Dosage: FREQUENCY : DAILY;?
     Route: 048

REACTIONS (7)
  - Anaemia [None]
  - International normalised ratio fluctuation [None]
  - Large intestine polyp [None]
  - Haemorrhage [None]
  - Hypophagia [None]
  - Melaena [None]
  - Haematemesis [None]

NARRATIVE: CASE EVENT DATE: 20211027
